FAERS Safety Report 19573507 (Version 1)
Quarter: 2021Q3

REPORT INFORMATION
  Report Type: Spontaneous
  Country: US (occurrence: US)
  Receive Date: 20210717
  Receipt Date: 20210717
  Transmission Date: 20211014
  Serious: Yes (Hospitalization, Other)
  Sender: FDA-Public Use
  Company Number: US-LUPIN PHARMACEUTICALS INC.-2021-11944

PATIENT
  Age: 56 Year
  Sex: Male

DRUGS (2)
  1. TESTOSTERONE. [Suspect]
     Active Substance: TESTOSTERONE
     Dosage: UNK, SINCE AGE 18
     Route: 061
  2. TESTOSTERONE. [Suspect]
     Active Substance: TESTOSTERONE
     Indication: HORMONE THERAPY
     Dosage: UNK, SINCE AGE 18
     Route: 048

REACTIONS (7)
  - Peripheral artery aneurysm [Unknown]
  - Arteriosclerosis [Unknown]
  - Renal aneurysm [Unknown]
  - Splenic artery aneurysm [Unknown]
  - Carotid artery stenosis [Unknown]
  - Hepatic artery aneurysm [Unknown]
  - Fibromuscular dysplasia [Recovering/Resolving]
